FAERS Safety Report 13924948 (Version 1)
Quarter: 2017Q3

REPORT INFORMATION
  Report Type: Report from Study
  Country: AU (occurrence: AU)
  Receive Date: 20170831
  Receipt Date: 20170831
  Transmission Date: 20171127
  Serious: Yes (Death, Other)
  Sender: FDA-Public Use
  Company Number: AU-REGENERON PHARMACEUTICALS, INC.-2016-20086

PATIENT

DRUGS (1)
  1. EYLEA [Suspect]
     Active Substance: AFLIBERCEPT
     Indication: NEOVASCULAR AGE-RELATED MACULAR DEGENERATION
     Dosage: DAILY DOSE 2 MG (SWEEKLY), NOV 2016 OR LATE OCT 2016 WAS THE LAST EYLEA INJECTION
     Route: 031
     Dates: start: 201511

REACTIONS (4)
  - Vision blurred [Unknown]
  - Lacrimation increased [Recovered/Resolved]
  - Visual impairment [Unknown]
  - Death [Fatal]

NARRATIVE: CASE EVENT DATE: 20160725
